FAERS Safety Report 8208449-6 (Version None)
Quarter: 2012Q1

REPORT INFORMATION
  Report Type: 
  Country: None (occurrence: None)
  Receive Date: 20120314
  Receipt Date: 20120309
  Transmission Date: 20120608
  Serious: Yes (Other)
  Sender: FDA-Public Use
  Company Number: US-PFIZER INC-2012064604

PATIENT
  Sex: Female

DRUGS (12)
  1. ACTOS [Concomitant]
     Indication: HEPATIC STEATOSIS
     Dosage: 45 MG, 1 TABLET EVERY MON., WED. AND FRI.
     Route: 048
  2. CALCIUM CARBONATE/COLECALCIFEROL [Concomitant]
     Dosage: 180-5,000 MG-UNIT TAB,1X/DAY
     Route: 048
  3. ACCUPRIL [Suspect]
     Dosage: 10 MG, 1X/DAY
     Route: 048
  4. ACCUPRIL [Suspect]
     Dosage: 20 MG, 1X/DAY
     Route: 048
  5. LIPITOR [Suspect]
     Dosage: 40 MG, 1X/DAY
     Route: 048
  6. TRICOR [Concomitant]
     Dosage: 145 MG, 1X/DAY
     Route: 048
  7. PROVENTIL GENTLEHALER [Concomitant]
     Dosage: 90MCG, INHALE 2 PUFFS INTO THE LUNGS 4X/DAY
     Route: 055
  8. RISPERDAL [Concomitant]
     Dosage: 1 MG, 1X/DAY NIGHTLY
     Route: 048
  9. CELEBREX [Concomitant]
     Dosage: 200 MG, 2X/DAY
     Route: 048
  10. ZOLOFT [Suspect]
     Dosage: 50 MG, 1X/DAY NIGHTLY
     Route: 048
  11. VITAMIN B-12 [Concomitant]
     Dosage: 2500 UG, 1X/DAY
     Route: 060
  12. MOMETASONE [Concomitant]
     Dosage: 200MCG-5MCG, 2X/DAY (INHALE 2 PUFFS INTO THE LUNGS 2X/ DAY
     Route: 055

REACTIONS (7)
  - ARTHRALGIA [None]
  - ABDOMINAL PAIN LOWER [None]
  - BIPOLAR I DISORDER [None]
  - ESSENTIAL HYPERTENSION [None]
  - BACK PAIN [None]
  - BLOOD CHOLESTEROL INCREASED [None]
  - DEPRESSION [None]
